FAERS Safety Report 21942291 (Version 1)
Quarter: 2023Q1

REPORT INFORMATION
  Report Type: Spontaneous
  Country: FR (occurrence: FR)
  Receive Date: 20230202
  Receipt Date: 20230202
  Transmission Date: 20230418
  Serious: No
  Sender: FDA-Public Use
  Company Number: FR-EXELIXIS-CABO-22057319

PATIENT
  Age: 74 Year
  Sex: Male

DRUGS (1)
  1. CABOMETYX [Suspect]
     Active Substance: CABOZANTINIB S-MALATE
     Indication: Renal cancer
     Dosage: 60 MG, QD
     Dates: start: 20210831

REACTIONS (2)
  - Blood thyroid stimulating hormone decreased [Unknown]
  - Hypophysitis [Not Recovered/Not Resolved]

NARRATIVE: CASE EVENT DATE: 20220929
